FAERS Safety Report 4327541-X (Version None)
Quarter: 2004Q1

REPORT INFORMATION
  Report Type: 
  Country: None (occurrence: None)
  Receive Date: 20040330
  Receipt Date: 20040330
  Transmission Date: 20041129
  Serious: Yes (Hospitalization)
  Sender: FDA-Public Use
  Company Number: None

PATIENT
  Age: 43 Year
  Sex: Female
  Weight: 61.0088 kg

DRUGS (6)
  1. KINERET [Suspect]
     Indication: RHEUMATOID ARTHRITIS
     Dosage: 100 MG DAILY SUBCUTANEOUS
     Route: 058
     Dates: start: 20000120, end: 20040207
  2. PLAQUENIL [Concomitant]
  3. ALTACE [Concomitant]
  4. BEXTRA [Concomitant]
  5. TRAZODONE HCL [Concomitant]
  6. PROTONIX [Concomitant]

REACTIONS (5)
  - ABDOMINAL PAIN [None]
  - CHOLECYSTECTOMY [None]
  - HEPATOSPLENOMEGALY [None]
  - PORTAL VEIN THROMBOSIS [None]
  - POST PROCEDURAL HAEMORRHAGE [None]
